FAERS Safety Report 7624142-2 (Version None)
Quarter: 2011Q3

REPORT INFORMATION
  Report Type: 
  Country: None (occurrence: None)
  Receive Date: 20110720
  Receipt Date: 20110613
  Transmission Date: 20111222
  Serious: Yes (Death)
  Sender: FDA-Public Use
  Company Number: PHHY2011DE53422

PATIENT
  Sex: Female
  Weight: 92 kg

DRUGS (5)
  1. CISPLATIN [Concomitant]
     Dosage: 30 MG/M2
     Dates: start: 20100413, end: 20100601
  2. ZOMETA [Suspect]
     Indication: BONE DISORDER
     Dosage: 4 MG/5ML EVERY 4 WEEKS
     Route: 042
     Dates: start: 20100413, end: 20100731
  3. LEVOTHYROXINE SODIUM [Concomitant]
     Dosage: 75 UG
     Dates: start: 19910101
  4. BISOPROLOL [Concomitant]
     Dosage: 5 MG
     Dates: start: 20080301
  5. GEMZAR [Concomitant]
     Dosage: 1000 MG/M2
     Dates: start: 20100413, end: 20100601

REACTIONS (7)
  - ASCITES [None]
  - GENERAL PHYSICAL HEALTH DETERIORATION [None]
  - NEOPLASM MALIGNANT [None]
  - METASTASES TO SKIN [None]
  - NEOPLASM PROGRESSION [None]
  - METASTASES TO ABDOMINAL CAVITY [None]
  - METASTASES TO LIVER [None]
